FAERS Safety Report 10230425 (Version 1)
Quarter: 2014Q2

REPORT INFORMATION
  Report Type: Spontaneous
  Country: US (occurrence: US)
  Receive Date: 20140611
  Receipt Date: 20140611
  Transmission Date: 20141212
  Serious: No
  Sender: FDA-Public Use
  Company Number: US-INCYTE CORPORATION-2014IN000699

PATIENT
  Age: 78 Year
  Sex: Male

DRUGS (4)
  1. JAKAFI [Suspect]
     Indication: MYELOFIBROSIS
     Dosage: 15 MG, BID
     Route: 048
     Dates: start: 20140115
  2. PLAVIX [Concomitant]
  3. ASPIRIN [Concomitant]
  4. SOTALOL [Concomitant]

REACTIONS (1)
  - Pain in extremity [Not Recovered/Not Resolved]
